FAERS Safety Report 7273682-7 (Version None)
Quarter: 2011Q1

REPORT INFORMATION
  Report Type: 
  Country: None (occurrence: None)
  Receive Date: 20110203
  Receipt Date: 20110131
  Transmission Date: 20110831
  Serious: Yes (Death)
  Sender: FDA-Public Use
  Company Number: US-PFIZER INC-2011021932

PATIENT
  Sex: Male
  Weight: 81.633 kg

DRUGS (1)
  1. REVATIO [Suspect]
     Indication: PULMONARY FIBROSIS
     Dosage: 20 MG, 3X/DAY
     Dates: start: 20090211

REACTIONS (1)
  - DEATH [None]
